FAERS Safety Report 6167634-8 (Version None)
Quarter: 2009Q2

REPORT INFORMATION
  Report Type: 
  Country: None (occurrence: None)
  Receive Date: 20090424
  Receipt Date: 20080605
  Transmission Date: 20091009
  Serious: Yes (Hospitalization, Other)
  Sender: FDA-Public Use
  Company Number: PHHY2008FR08837

PATIENT
  Sex: Female
  Weight: 60 kg

DRUGS (3)
  1. GLEEVEC [Suspect]
     Dosage: 400 MG, QD
     Dates: start: 20080221, end: 20080321
  2. GLEEVEC [Suspect]
     Dosage: 300 MG, QD, FOR 1 MONTH
  3. CERAZETTE [Concomitant]
     Indication: CONTRACEPTION
     Route: 065

REACTIONS (4)
  - COUGH [None]
  - DYSPNOEA [None]
  - ERYTHEMA NODOSUM [None]
  - FEBRILE NEUTROPENIA [None]
